FAERS Safety Report 5613822-6 (Version None)
Quarter: 2008Q1

REPORT INFORMATION
  Report Type: 
  Country: None (occurrence: None)
  Receive Date: 20080205
  Receipt Date: 20080122
  Transmission Date: 20080703
  Serious: Yes (Death)
  Sender: FDA-Public Use
  Company Number: CA-GENENTECH-255062

PATIENT
  Sex: Male

DRUGS (2)
  1. AVASTIN [Suspect]
     Indication: BILE DUCT CANCER
     Dosage: 325 MG, Q2W
     Route: 042
     Dates: start: 20070326, end: 20070420
  2. AVASTIN [Suspect]
     Dosage: 275 MG, Q2W
     Route: 042
     Dates: start: 20071218, end: 20080114

REACTIONS (2)
  - DEATH [None]
  - DEHYDRATION [None]
